FAERS Safety Report 4263872-X (Version None)
Quarter: 2004Q1

REPORT INFORMATION
  Report Type: 
  Country: None (occurrence: None)
  Receive Date: 20040102
  Receipt Date: 20031218
  Transmission Date: 20041129
  Serious: Yes (Hospitalization)
  Sender: FDA-Public Use
  Company Number: FR_031203327

PATIENT
  Age: 34 Year
  Sex: Female

DRUGS (3)
  1. PROZAC [Suspect]
     Dosage: 320 MG/OTHER
     Dates: start: 20010213, end: 20010213
  2. DI-ANTALVIC [Concomitant]
  3. SYMPAVAGOL [Concomitant]

REACTIONS (3)
  - BRADYPHRENIA [None]
  - HYPOTONIA [None]
  - SOMNOLENCE [None]
